FAERS Safety Report 11830484 (Version 3)
Quarter: 2015Q4

REPORT INFORMATION
  Report Type: Spontaneous
  Country: US (occurrence: US)
  Receive Date: 20151214
  Receipt Date: 20151215
  Transmission Date: 20160305
  Serious: Yes (Hospitalization)
  Sender: FDA-Public Use
  Company Number: US-JNJFOC-20151127399

PATIENT
  Sex: Female
  Weight: 81.65 kg

DRUGS (4)
  1. TRIAMTERENE. [Concomitant]
     Active Substance: TRIAMTERENE
     Indication: DIURETIC THERAPY
     Dosage: 37.5/25 MG
     Route: 065
  2. PANCREAZE [Suspect]
     Active Substance: PANCRELIPASE
     Indication: PANCREATITIS
     Route: 048
     Dates: start: 2008
  3. RESTASIS [Concomitant]
     Active Substance: CYCLOSPORINE
     Indication: DRY EYE
     Route: 065
     Dates: start: 201505
  4. PROTONIX [Concomitant]
     Active Substance: PANTOPRAZOLE SODIUM
     Indication: GASTROOESOPHAGEAL REFLUX PROPHYLAXIS
     Route: 065

REACTIONS (1)
  - Pancreatitis relapsing [Recovered/Resolved]

NARRATIVE: CASE EVENT DATE: 2011
